FAERS Safety Report 8285889-0 (Version None)
Quarter: 2012Q2

REPORT INFORMATION
  Report Type: 
  Country: None (occurrence: None)
  Receive Date: 20120414
  Receipt Date: 20080414
  Transmission Date: 20120825
  Serious: Yes (Other)
  Sender: FDA-Public Use
  Company Number: PHHY2008GB05923

PATIENT
  Sex: Female

DRUGS (1)
  1. EXJADE [Suspect]
     Indication: IRON OVERLOAD
     Dosage: 1125 MG, QD
     Route: 048

REACTIONS (6)
  - RENAL PAIN [None]
  - CONSTIPATION [None]
  - ASTHENIA [None]
  - PYREXIA [None]
  - HYPERSENSITIVITY [None]
  - RASH [None]
